FAERS Safety Report 6104001-7 (Version None)
Quarter: 2009Q1

REPORT INFORMATION
  Report Type: 
  Country: None (occurrence: None)
  Receive Date: 20090227
  Receipt Date: 20090224
  Transmission Date: 20090719
  Serious: Yes (Death, Life-Threatening, Disabling, Other)
  Sender: FDA-Public Use
  Company Number: 2008SP013170

PATIENT
  Age: 57 Year
  Sex: Female
  Weight: 67 kg

DRUGS (12)
  1. TEMODAL [Suspect]
     Indication: GLIOBLASTOMA MULTIFORME
     Dosage: SEE IMAGE, PO
     Route: 048
     Dates: start: 20070302, end: 20070327
  2. TEMODAL [Suspect]
     Indication: GLIOBLASTOMA MULTIFORME
     Dosage: SEE IMAGE, PO
     Route: 048
     Dates: start: 20071004, end: 20071008
  3. TEMODAL [Suspect]
     Indication: GLIOBLASTOMA MULTIFORME
     Dosage: SEE IMAGE, PO
     Route: 048
     Dates: start: 20071206, end: 20071210
  4. TEMODAL [Suspect]
     Indication: GLIOBLASTOMA MULTIFORME
     Dosage: SEE IMAGE, PO
     Route: 048
     Dates: start: 20080110, end: 20080114
  5. TEMODAL [Suspect]
     Indication: GLIOBLASTOMA MULTIFORME
     Dosage: SEE IMAGE, PO
     Route: 048
     Dates: start: 20080207, end: 20080211
  6. BAKTAR [Concomitant]
  7. DEPAKENE [Concomitant]
  8. EXCEGRAN [Concomitant]
  9. LIPITOR [Concomitant]
  10. GASTER D [Concomitant]
  11. KYTRIL [Concomitant]
  12. ALEVIATIN [Concomitant]

REACTIONS (6)
  - DYSPHAGIA [None]
  - LEUKOENCEPHALOPATHY [None]
  - NAUSEA [None]
  - NEUTROPHIL COUNT DECREASED [None]
  - PNEUMONIA [None]
  - WHITE BLOOD CELL COUNT DECREASED [None]
